FAERS Safety Report 12722294 (Version 5)
Quarter: 2019Q1

REPORT INFORMATION
  Report Type: Spontaneous
  Country: BR (occurrence: BR)
  Receive Date: 20160907
  Receipt Date: 20190314
  Transmission Date: 20190417
  Serious: Yes (Other)
  Sender: FDA-Public Use
  Company Number: BR-PFIZER INC-2016397406

PATIENT
  Age: 43 Year
  Sex: Female

DRUGS (3)
  1. RIVOTRIL [Concomitant]
     Active Substance: CLONAZEPAM
     Indication: INSOMNIA
     Dosage: UNK
     Dates: start: 2011
  2. GEODON [Suspect]
     Active Substance: ZIPRASIDONE HYDROCHLORIDE\ZIPRASIDONE MESYLATE
     Dosage: 40 MG, 1X/DAY
  3. GEODON [Suspect]
     Active Substance: ZIPRASIDONE HYDROCHLORIDE\ZIPRASIDONE MESYLATE
     Indication: BIPOLAR DISORDER
     Dosage: 40MG, 1 TABLET DAILY
     Dates: start: 2011, end: 201902

REACTIONS (4)
  - Aggression [Recovered/Resolved]
  - Depression [Unknown]
  - Fear [Recovered/Resolved]
  - Withdrawal syndrome [Recovered/Resolved]

NARRATIVE: CASE EVENT DATE: 201902
